FAERS Safety Report 8226219-X (Version None)
Quarter: 2012Q1

REPORT INFORMATION
  Report Type: 
  Country: None (occurrence: None)
  Receive Date: 20120307
  Receipt Date: 20100901
  Transmission Date: 20120608
  Serious: No
  Sender: FDA-Public Use
  Company Number: PHHY2010US58165

PATIENT
  Sex: Male

DRUGS (1)
  1. AFINITOR [Suspect]
     Indication: METASTASES TO LIVER
     Dosage: 10 MG, ORAL
     Route: 048
     Dates: start: 20100810, end: 20100824

REACTIONS (2)
  - BURNING SENSATION [None]
  - RASH [None]
